FAERS Safety Report 14430590 (Version 1)
Quarter: 2018Q1

REPORT INFORMATION
  Report Type: Spontaneous
  Country: US (occurrence: US)
  Receive Date: 20180123
  Receipt Date: 20180123
  Transmission Date: 20180509
  Serious: Yes (Other)
  Sender: FDA-Public Use
  Company Number: None

PATIENT
  Age: 22 Year
  Sex: Female
  Weight: 76.5 kg

DRUGS (1)
  1. ANY STEROID CREAM [Suspect]
     Active Substance: UNSPECIFIED INGREDIENT
     Indication: ECZEMA
     Route: 061

REACTIONS (3)
  - Steroid withdrawal syndrome [None]
  - Eczema [None]
  - Drug dependence [None]

NARRATIVE: CASE EVENT DATE: 20080101
